FAERS Safety Report 7371605-3 (Version None)
Quarter: 2011Q1

REPORT INFORMATION
  Report Type: 
  Country: None (occurrence: None)
  Receive Date: 20110316
  Receipt Date: 20110302
  Transmission Date: 20110831
  Serious: Yes (Hospitalization)
  Sender: FDA-Public Use
  Company Number: 2011MA002145

PATIENT
  Age: 44 Year
  Sex: Male

DRUGS (3)
  1. VOLTAREN [Concomitant]
  2. MUSCORIL [Concomitant]
  3. DIAZEPAM [Suspect]
     Indication: DEPRESSION
     Dosage: 30 ML;QD;PO
     Route: 047
     Dates: start: 20110115, end: 20110115

REACTIONS (2)
  - SOPOR [None]
  - MIOSIS [None]
